FAERS Safety Report 5942610-6 (Version None)
Quarter: 2008Q4

REPORT INFORMATION
  Report Type: 
  Country: None (occurrence: None)
  Receive Date: 20081103
  Receipt Date: 20081022
  Transmission Date: 20090506
  Serious: Yes (Hospitalization, Other)
  Sender: FDA-Public Use
  Company Number: 2008MB000107

PATIENT
  Age: 45 Year
  Sex: Female

DRUGS (11)
  1. CEPHALEXIN [Suspect]
     Indication: CELLULITIS
     Dosage: 500 MG; Q6H
     Dates: start: 20070512
  2. WARFARIN SODIUM [Suspect]
     Indication: DEEP VEIN THROMBOSIS
     Dosage: 28 MG; QW, 20 MG; QW, 28 MG; QW, 32 MG; QW
     Dates: start: 20060201, end: 20060801
  3. WARFARIN SODIUM [Suspect]
     Indication: DEEP VEIN THROMBOSIS
     Dosage: 28 MG; QW, 20 MG; QW, 28 MG; QW, 32 MG; QW
     Dates: start: 20070513, end: 20070605
  4. WARFARIN SODIUM [Suspect]
     Indication: DEEP VEIN THROMBOSIS
     Dosage: 28 MG; QW, 20 MG; QW, 28 MG; QW, 32 MG; QW
     Dates: start: 20070608, end: 20070610
  5. WARFARIN SODIUM [Suspect]
     Indication: DEEP VEIN THROMBOSIS
     Dosage: 28 MG; QW, 20 MG; QW, 28 MG; QW, 32 MG; QW
     Dates: start: 20070611, end: 20070717
  6. WARFARIN SODIUM [Suspect]
     Indication: DEEP VEIN THROMBOSIS
     Dosage: 28 MG; QW, 20 MG; QW, 28 MG; QW, 32 MG; QW
     Dates: start: 20061201
  7. WARFARIN SODIUM [Suspect]
     Indication: DEEP VEIN THROMBOSIS
     Dosage: 28 MG; QW, 20 MG; QW, 28 MG; QW, 32 MG; QW
     Dates: start: 20070718
  8. PREDNISONE [Suspect]
     Indication: RASH
     Dosage: PO
     Route: 048
     Dates: start: 20070515, end: 20070519
  9. PREDNISONE [Suspect]
     Indication: RASH
     Dosage: PO
     Route: 048
     Dates: start: 20070525, end: 20070606
  10. HEPARIN [Concomitant]
  11. CEFAZOLIN [Concomitant]

REACTIONS (4)
  - DRUG INTERACTION [None]
  - INTERNATIONAL NORMALISED RATIO INCREASED [None]
  - LEUKOCYTOCLASTIC VASCULITIS [None]
  - PETECHIAE [None]
